FAERS Safety Report 12725593 (Version 1)
Quarter: 2016Q3

REPORT INFORMATION
  Report Type: Other
  Country: US (occurrence: US)
  Receive Date: 20160908
  Receipt Date: 20160908
  Transmission Date: 20161109
  Serious: No
  Sender: FDA-Public Use
  Company Number: US-COL_22734_2016

PATIENT
  Age: 57 Year
  Sex: Male

DRUGS (1)
  1. COLGATE TOTAL ADVANCED FRESH PLUS WHITENING [Suspect]
     Active Substance: SODIUM FLUORIDE\TRICLOSAN
     Indication: PRODUCT USED FOR UNKNOWN INDICATION
     Dosage: COVERED HALF THE HEAD OF THE TOOTHBRUSH/BID/
     Route: 048
     Dates: start: 20160409, end: 20160414

REACTIONS (8)
  - Influenza [Recovering/Resolving]
  - Oral mucosal erythema [Recovering/Resolving]
  - Dyspepsia [Recovering/Resolving]
  - Oral pain [Recovering/Resolving]
  - Glossitis [Recovering/Resolving]
  - Somnolence [Recovering/Resolving]
  - Stomatitis [Recovering/Resolving]
  - Tongue discolouration [Recovering/Resolving]

NARRATIVE: CASE EVENT DATE: 201604
